FAERS Safety Report 26152041 (Version 2)
Quarter: 2025Q4

REPORT INFORMATION
  Report Type: Spontaneous
  Country: BR (occurrence: BR)
  Receive Date: 20251214
  Receipt Date: 20251216
  Transmission Date: 20260118
  Serious: Yes (Other)
  Sender: NOVARTIS
  Company Number: BR-002147023-NVSC2025BR179549

PATIENT
  Age: 67 Year
  Sex: Female
  Weight: 70 kg

DRUGS (5)
  1. ELTROMBOPAG OLAMINE [Suspect]
     Active Substance: ELTROMBOPAG OLAMINE
     Indication: Product used for unknown indication
     Dosage: 50 MG, QD (FOUR HOURS OF FASTING BEFORE TAKING IT AND TWO HOURS AFTER TAKING IT, ONLY THEN CAN YOU E
     Route: 048
     Dates: start: 202507
  2. ELTROMBOPAG OLAMINE [Suspect]
     Active Substance: ELTROMBOPAG OLAMINE
     Dosage: 25 MG (THIS BATCH IS A FREE SAMPLE OF 25MG. I STARTED TAKING IT IN JUL-2025, ORAL, CONTINUOUS USE)
     Route: 048
     Dates: start: 202507
  3. ELTROMBOPAG OLAMINE [Suspect]
     Active Substance: ELTROMBOPAG OLAMINE
     Dosage: UNK
     Route: 065
     Dates: start: 202511
  4. OLMESARTAN MEDOXOMIL [Concomitant]
     Active Substance: OLMESARTAN MEDOXOMIL
     Indication: Tachycardia
     Dosage: UNK (30 COATED TABLETS ADULT AND PEDIATRIC USE OVER 6 YEARS OLD)
     Route: 048
  5. BENICAR [Concomitant]
     Active Substance: OLMESARTAN MEDOXOMIL
     Indication: Blood pressure measurement
     Dosage: 1 DOSAGE FORM, QD (1 TABLET  A DAY, ABOUT 5-6 YEARS)
     Route: 065

REACTIONS (6)
  - Immune thrombocytopenia [Unknown]
  - Depressed mood [Unknown]
  - Blood glucose increased [Unknown]
  - Red blood cell count increased [Recovered/Resolved]
  - Platelet count increased [Recovered/Resolved]
  - Platelet count increased [Recovered/Resolved]

NARRATIVE: CASE EVENT DATE: 20250723
